FAERS Safety Report 4539721-9 (Version None)
Quarter: 2004Q4

REPORT INFORMATION
  Report Type: 
  Country: None (occurrence: None)
  Receive Date: 20041223
  Receipt Date: 20041122
  Transmission Date: 20050328
  Serious: No
  Sender: FDA-Public Use
  Company Number: 9418

PATIENT
  Age: 16 Year
  Sex: Male

DRUGS (5)
  1. METHOTREXATE [Suspect]
     Indication: BONE SARCOMA
     Dosage: 12 MG/M2 FREQ IV
     Route: 042
     Dates: start: 20041118, end: 20041118
  2. FLUCONAZOLE [Concomitant]
  3. FLUCLOXACILLIN [Concomitant]
  4. OMEPRAZOLE [Concomitant]
  5. CHLORHEXIDINE [Concomitant]

REACTIONS (1)
  - RASH MACULO-PAPULAR [None]
